FAERS Safety Report 9640897 (Version 2)
Quarter: 2013Q4

REPORT INFORMATION
  Report Type: Report from Study
  Country: US (occurrence: US)
  Receive Date: 20131023
  Receipt Date: 20131023
  Transmission Date: 20140711
  Serious: No
  Sender: FDA-Public Use
  Company Number: US-ABBVIE-12P-163-0990486-00

PATIENT
  Sex: Female
  Weight: 48.58 kg

DRUGS (1)
  1. LUPRON DEPOT [Suspect]
     Indication: ENDOMETRIOSIS
     Route: 050
     Dates: start: 201209

REACTIONS (5)
  - Vaginal haemorrhage [Recovered/Resolved]
  - Headache [Recovered/Resolved]
  - Vaginal haemorrhage [Recovered/Resolved]
  - Blood glucose increased [Recovered/Resolved]
  - Drug ineffective [Unknown]
